FAERS Safety Report 4685964-3 (Version None)
Quarter: 2005Q2

REPORT INFORMATION
  Report Type: 
  Country: None (occurrence: None)
  Receive Date: 20050607
  Receipt Date: 20050607
  Transmission Date: 20051028
  Serious: Yes (Life-Threatening, Other)
  Sender: FDA-Public Use
  Company Number: None

PATIENT
  Sex: Female
  Weight: 72.5755 kg

DRUGS (3)
  1. ZOLOFT [Suspect]
     Indication: ANXIETY
     Dosage: 150 MG QD ORAL
     Route: 048
     Dates: start: 19850106, end: 20050604
  2. ZOLOFT [Suspect]
     Indication: DEPRESSION
     Dosage: 150 MG QD ORAL
     Route: 048
     Dates: start: 19850106, end: 20050604
  3. ULTRACET [Suspect]
     Indication: BACK PAIN
     Dosage: 1-2 Q 4 HOURS PRN ORAL
     Route: 048
     Dates: start: 20050315, end: 20050430

REACTIONS (12)
  - AMNESIA [None]
  - BACK DISORDER [None]
  - COGWHEEL RIGIDITY [None]
  - CONFUSIONAL STATE [None]
  - COORDINATION ABNORMAL [None]
  - DRUG INTERACTION [None]
  - DRUG WITHDRAWAL SYNDROME [None]
  - DYSKINESIA [None]
  - IMPAIRED WORK ABILITY [None]
  - PAIN [None]
  - SEROTONIN SYNDROME [None]
  - TREMOR [None]
